FAERS Safety Report 11567198 (Version 1)
Quarter: 2015Q3

REPORT INFORMATION
  Report Type: Other
  Country: JP (occurrence: JP)
  Receive Date: 20150929
  Receipt Date: 20150929
  Transmission Date: 20151125
  Serious: Yes (Hospitalization, Other)
  Sender: FDA-Public Use
  Company Number: JP-ACTELION-A-CH2015-124235

PATIENT
  Age: 77 Year
  Sex: Female

DRUGS (3)
  1. OLPRINONE [Suspect]
     Active Substance: OLPRINONE HYDROCHLORIDE
     Indication: PRODUCT USED FOR UNKNOWN INDICATION
     Route: 065
  2. TRACLEER [Suspect]
     Active Substance: BOSENTAN
     Indication: PULMONARY HYPERTENSION
     Dosage: UNK
     Route: 048
  3. SILDENAFIL. [Concomitant]
     Active Substance: SILDENAFIL

REACTIONS (8)
  - Vomiting [Unknown]
  - Pulmonary arterial pressure increased [Recovering/Resolving]
  - Colectomy [Unknown]
  - Volume blood decreased [Recovered/Resolved]
  - Colon cancer [Unknown]
  - Ileus [Unknown]
  - Abdominal pain [Unknown]
  - Blood pressure fluctuation [Recovered/Resolved]
